FAERS Safety Report 20777429 (Version 3)
Quarter: 2022Q2

REPORT INFORMATION
  Report Type: Report from Study
  Country: CA (occurrence: CA)
  Receive Date: 20220503
  Receipt Date: 20220603
  Transmission Date: 20220721
  Serious: Yes (Other)
  Sender: FDA-Public Use
  Company Number: CA-JNJFOC-20220354623

PATIENT
  Age: 53 Year
  Sex: Male
  Weight: 83 kg

DRUGS (1)
  1. REMICADE [Suspect]
     Active Substance: INFLIXIMAB
     Indication: Ankylosing spondylitis
     Dosage: THERAPY START DATE ALSO REPORTED AS 16-DEC-2008?EXPIRATION DATE 01-OCT-2024
     Route: 042
     Dates: start: 20070101

REACTIONS (5)
  - Sarcoidosis [Unknown]
  - COVID-19 [Not Recovered/Not Resolved]
  - Heart rate increased [Unknown]
  - Incorrect drug administration rate [Unknown]
  - Off label use [Unknown]

NARRATIVE: CASE EVENT DATE: 20211105
